FAERS Safety Report 7582357-6 (Version None)
Quarter: 2011Q2

REPORT INFORMATION
  Report Type: 
  Country: None (occurrence: None)
  Receive Date: 20110630
  Receipt Date: 20110623
  Transmission Date: 20111010
  Serious: Yes (Other)
  Sender: FDA-Public Use
  Company Number: US-JNJFOC-20100601481

PATIENT
  Sex: Female

DRUGS (2)
  1. LEVAQUIN [Suspect]
     Indication: NASOPHARYNGITIS
     Route: 048
  2. LEVAQUIN [Suspect]
     Indication: COUGH
     Route: 048

REACTIONS (7)
  - MUSCULAR WEAKNESS [None]
  - IMMOBILE [None]
  - RASH [None]
  - TENOSYNOVITIS [None]
  - TENDONITIS [None]
  - NEURITIS [None]
  - PAIN [None]
